FAERS Safety Report 20793656 (Version 1)
Quarter: 2022Q2

REPORT INFORMATION
  Report Type: Spontaneous
  Country: DE (occurrence: DE)
  Receive Date: 20220506
  Receipt Date: 20220506
  Transmission Date: 20220721
  Serious: Yes (Death, Other)
  Sender: FDA-Public Use
  Company Number: DE-drreddys-LIT/GER/22/0149636

PATIENT
  Age: 4 Year

DRUGS (6)
  1. IMATINIB [Suspect]
     Active Substance: IMATINIB
     Indication: Rhabdoid tumour
  2. VINCRISTINE [Suspect]
     Active Substance: VINCRISTINE
     Indication: Rhabdoid tumour
     Dosage: 4 MONTHS
  3. DACTINOMYCIN [Suspect]
     Active Substance: DACTINOMYCIN
     Indication: Rhabdoid tumour
     Dosage: 4 MONTHS
  4. CYCLOPHOSPHAMIDE [Suspect]
     Active Substance: CYCLOPHOSPHAMIDE
     Indication: Rhabdoid tumour
     Dosage: 4 MONTHS
  5. METHOTREXATE [Suspect]
     Active Substance: METHOTREXATE
     Indication: Rhabdoid tumour
     Dosage: 10 MONTHS
  6. VINBLASTINE [Suspect]
     Active Substance: VINBLASTINE
     Indication: Rhabdoid tumour
     Dosage: 10 MONTHS

REACTIONS (2)
  - Disease progression [Fatal]
  - Drug ineffective [Unknown]
